FAERS Safety Report 8887165 (Version 2)
Quarter: 2013Q1

REPORT INFORMATION
  Report Type: Spontaneous
  Country: US (occurrence: US)
  Receive Date: 20121105
  Receipt Date: 20130218
  Transmission Date: 20140127
  Serious: Yes (Death, Life-Threatening, Hospitalization)
  Sender: FDA-Public Use
  Company Number: US-ROCHE-1151313

PATIENT
  Age: 50 Year
  Sex: Female
  Weight: 53.75 kg

DRUGS (15)
  1. CLONAZEPAM [Suspect]
     Indication: BIPOLAR DISORDER
     Route: 048
     Dates: start: 20120327
  2. DACOMITINIB [Suspect]
     Indication: NON-SMALL CELL LUNG CANCER
     Route: 048
     Dates: start: 20120726, end: 20120922
  3. DOXICYCLIN [Suspect]
     Indication: NON-SMALL CELL LUNG CANCER
     Route: 048
     Dates: start: 20120726, end: 20120822
  4. PRAZOSIN HCL [Suspect]
     Indication: HYPERTENSION
     Route: 048
     Dates: start: 20120810
  5. MORPHINE SULFATE [Suspect]
     Indication: PAIN
     Route: 048
     Dates: start: 20120327
  6. OXYCODONE [Suspect]
     Indication: PAIN
     Route: 048
     Dates: start: 20120810
  7. CYMBALTA [Suspect]
     Indication: BIPOLAR DISORDER
     Route: 048
     Dates: start: 20120327
  8. WELLBUTRIN [Suspect]
     Indication: BIPOLAR DISORDER
     Route: 048
     Dates: start: 20120327
  9. ZYPREXA [Suspect]
     Indication: BIPOLAR DISORDER
     Dosage: 7.5, 20 MG
     Route: 048
     Dates: start: 20120327
  10. TOPAMAX [Suspect]
     Indication: BIPOLAR DISORDER
     Route: 048
     Dates: start: 20120329
  11. PERCOCET [Suspect]
     Indication: BIPOLAR DISORDER
     Dosage: 5 TO 325 MG
     Route: 048
     Dates: start: 20120327
  12. OXYCONTIN [Suspect]
     Indication: PAIN
     Route: 048
     Dates: start: 20120810
  13. CALCIUM CITRATE [Concomitant]
  14. FOLIC ACID [Concomitant]
  15. VITAMIN B12 [Concomitant]

REACTIONS (2)
  - Gastrointestinal haemorrhage [Fatal]
  - Hypovolaemic shock [Fatal]
